FAERS Safety Report 9787875 (Version 1)
Quarter: 2013Q4

REPORT INFORMATION
  Report Type: Spontaneous
  Country: US (occurrence: US)
  Receive Date: 20131230
  Receipt Date: 20131230
  Transmission Date: 20140711
  Serious: No
  Sender: FDA-Public Use
  Company Number: US-BAYER-2013-158455

PATIENT
  Age: 46 Year
  Sex: Male
  Weight: 72.56 kg

DRUGS (2)
  1. ALEVE CAPLET [Suspect]
     Indication: BACK PAIN
     Dosage: 2 DF, QD
     Route: 048
     Dates: start: 20131216, end: 20131218
  2. ZOCOR [Concomitant]
     Dosage: UNK

REACTIONS (1)
  - Dyspepsia [Recovered/Resolved]
